FAERS Safety Report 10336639 (Version 1)
Quarter: 2014Q3

REPORT INFORMATION
  Report Type: Spontaneous
  Country: US (occurrence: US)
  Receive Date: 20140723
  Receipt Date: 20140723
  Transmission Date: 20150326
  Serious: No
  Sender: FDA-Public Use
  Company Number: US-UNITED THERAPEUTICS-UTC-043889

PATIENT
  Sex: Female
  Weight: 113.6 kg

DRUGS (3)
  1. WARFARIN [Concomitant]
     Active Substance: WARFARIN
  2. TYVASO [Suspect]
     Active Substance: TREPROSTINIL
     Dates: start: 20120322
  3. NO DRUG NAME [Concomitant]

REACTIONS (1)
  - Malaise [Unknown]
